FAERS Safety Report 8882019 (Version 5)
Quarter: 2014Q3

REPORT INFORMATION
  Report Type: Spontaneous
  Country: US (occurrence: US)
  Receive Date: 20121102
  Receipt Date: 20140710
  Transmission Date: 20150326
  Serious: Yes (Other)
  Sender: FDA-Public Use
  Company Number: US-AMGEN-USASP2012069243

PATIENT
  Age: 68 Year
  Sex: Female

DRUGS (2)
  1. INTERFERON NOS [Concomitant]
     Active Substance: INTERFERON
     Dosage: UNK
  2. ARANESP [Suspect]
     Active Substance: DARBEPOETIN ALFA
     Indication: ANAEMIA
     Dosage: 100 MUG, QWK
     Route: 065
     Dates: start: 2011, end: 201207

REACTIONS (3)
  - Neutralising antibodies positive [Unknown]
  - Aplasia pure red cell [Unknown]
  - Anti-erythropoietin antibody positive [Unknown]
